FAERS Safety Report 7541398-5 (Version None)
Quarter: 2011Q2

REPORT INFORMATION
  Report Type: 
  Country: None (occurrence: None)
  Receive Date: 20110613
  Receipt Date: 20110607
  Transmission Date: 20111010
  Serious: No
  Sender: FDA-Public Use
  Company Number: US-BIOGENIDEC-2010BI043934

PATIENT
  Sex: Female

DRUGS (3)
  1. TYSABRI [Suspect]
     Indication: MULTIPLE SCLEROSIS
     Route: 042
     Dates: start: 20100915
  2. BACLOFEN [Concomitant]
     Indication: TREMOR
     Route: 048
  3. GABAPENTIN [Concomitant]
     Indication: TREMOR
     Route: 048

REACTIONS (5)
  - RHINORRHOEA [None]
  - NASOPHARYNGITIS [None]
  - VIRAL INFECTION [None]
  - ORGASM ABNORMAL [None]
  - COUGH [None]
